FAERS Safety Report 17223774 (Version 1)
Quarter: 2020Q1

REPORT INFORMATION
  Report Type: Spontaneous
  Country: EG (occurrence: EG)
  Receive Date: 20200102
  Receipt Date: 20200102
  Transmission Date: 20200409
  Serious: Yes (Disabling, Other)
  Sender: FDA-Public Use
  Company Number: EG-ROCHE-2508608

PATIENT
  Sex: Female

DRUGS (1)
  1. OCREVUS [Suspect]
     Active Substance: OCRELIZUMAB
     Indication: MULTIPLE SCLEROSIS
     Dosage: ON 19/DEC/2019, RECEIVED SECOND PART OF HER 1ST DOSE.
     Route: 042
     Dates: start: 20191205

REACTIONS (2)
  - Tremor [Not Recovered/Not Resolved]
  - Monoplegia [Not Recovered/Not Resolved]
